FAERS Safety Report 23426310 (Version 2)
Quarter: 2024Q1

REPORT INFORMATION
  Report Type: Spontaneous
  Country: US (occurrence: US)
  Receive Date: 20240122
  Receipt Date: 20240222
  Transmission Date: 20240409
  Serious: No
  Sender: FDA-Public Use
  Company Number: US-BRISTOL-MYERS SQUIBB COMPANY-2024-010424

PATIENT
  Age: 60 Year
  Sex: Male

DRUGS (2)
  1. REVLIMID [Suspect]
     Active Substance: LENALIDOMIDE
     Indication: Myelodysplastic syndrome with ringed sideroblasts
     Route: 048
     Dates: start: 202312
  2. REVLIMID [Suspect]
     Active Substance: LENALIDOMIDE

REACTIONS (8)
  - Pain [Unknown]
  - Arthralgia [Recovering/Resolving]
  - Mental status changes [Unknown]
  - Dry skin [Unknown]
  - Skin disorder [Unknown]
  - Full blood count abnormal [Unknown]
  - Pruritus [Unknown]
  - Off label use [Unknown]
